FAERS Safety Report 17307100 (Version 1)
Quarter: 2020Q1

REPORT INFORMATION
  Report Type: Spontaneous
  Country: ES (occurrence: ES)
  Receive Date: 20200123
  Receipt Date: 20200123
  Transmission Date: 20200409
  Serious: Yes (Life-Threatening, Hospitalization, Other)
  Sender: FDA-Public Use
  Company Number: ES-PFIZER INC-2020029675

PATIENT
  Age: 34 Year
  Sex: Female
  Weight: 60 kg

DRUGS (11)
  1. METAMIZOLE [Suspect]
     Active Substance: METAMIZOLE
     Indication: ANALGESIC THERAPY
     Dosage: 8 G, SINGLE
     Route: 042
     Dates: start: 20190214
  2. LORAZEPAM ARISTO [Suspect]
     Active Substance: LORAZEPAM
     Route: 065
     Dates: start: 20190214
  3. RANITIDINE. [Suspect]
     Active Substance: RANITIDINE
     Indication: PROPHYLAXIS
     Dosage: 50 MG, SINGLE
     Route: 042
     Dates: start: 20190214
  4. MEROPENEM ACCORD [Suspect]
     Active Substance: MEROPENEM
     Dosage: UNK
     Route: 042
     Dates: start: 20190224
  5. OMEPRAZOLE. [Suspect]
     Active Substance: OMEPRAZOLE
     Indication: PROPHYLAXIS
     Dates: start: 20190214
  6. FILGRASTIM [Suspect]
     Active Substance: FILGRASTIM
     Dosage: UNK
     Route: 065
     Dates: start: 20190224
  7. PARACETAMOL ABAMED [Suspect]
     Active Substance: ACETAMINOPHEN
     Indication: ANALGESIC THERAPY
     Dosage: 1 G, 3X/DAY (EVERY 8 HOURS)
     Route: 042
     Dates: start: 20190214, end: 20190216
  8. METAMIZOLE HARKLEY [Suspect]
     Active Substance: METAMIZOLE
     Indication: POSTOPERATIVE ANALGESIA
     Dosage: IV INFUSION OF METAMIZOLE (8 G) + METOCROPRAMIDE (30 MG) IN 506 ML AT 21.08 ML / H
     Route: 042
     Dates: start: 20190214, end: 20190216
  9. PARACETAMOL [Suspect]
     Active Substance: ACETAMINOPHEN
     Route: 042
     Dates: start: 20190217
  10. AMOXICILLIN/CLAVULANIC ACID DOMAC [Suspect]
     Active Substance: AMOXICILLIN\CLAVULANIC ACID
     Dosage: 1 DF, SINGLE
     Route: 065
     Dates: start: 20190214
  11. NITRIC OXIDE. [Suspect]
     Active Substance: NITRIC OXIDE
     Indication: ANAESTHESIA
     Route: 055
     Dates: start: 20190215, end: 20190215

REACTIONS (3)
  - Neutropenia [Unknown]
  - Anaemia [Unknown]
  - Agranulocytosis [Unknown]

NARRATIVE: CASE EVENT DATE: 20190223
